FAERS Safety Report 7474342-X (Version None)
Quarter: 2011Q2

REPORT INFORMATION
  Report Type: 
  Country: None (occurrence: None)
  Receive Date: 20110511
  Receipt Date: 20100709
  Transmission Date: 20111010
  Serious: No
  Sender: FDA-Public Use
  Company Number: US-AMGEN-TCS423777

PATIENT
  Age: 47 Year
  Sex: Male

DRUGS (2)
  1. ENBREL [Suspect]
     Indication: ANKYLOSING SPONDYLITIS
     Dosage: 50 MG, QWK
     Route: 058
     Dates: start: 20060103, end: 20090101
  2. HUMIRA [Concomitant]
     Dosage: UNK UNK, UNK
     Dates: start: 20090101

REACTIONS (2)
  - THERAPEUTIC RESPONSE DECREASED [None]
  - BREAKTHROUGH PAIN [None]
